FAERS Safety Report 15306104 (Version 6)
Quarter: 2020Q3

REPORT INFORMATION
  Report Type: Spontaneous
  Country: US (occurrence: US)
  Receive Date: 20180822
  Receipt Date: 20200916
  Transmission Date: 20201102
  Serious: No
  Sender: FDA-Public Use
  Company Number: US-PFIZER INC-2018336123

PATIENT
  Age: 46 Year
  Sex: Female
  Weight: 78.46 kg

DRUGS (34)
  1. LIDOCAINE. [Concomitant]
     Active Substance: LIDOCAINE
     Dosage: UNK (APPLY 1?2 GRAMS TO HANDS 3?4 TIMES DAILY. RUB IN WELL FOR 1?2 MINUTES.)
     Dates: start: 2017
  2. EPINEPHRINE. [Concomitant]
     Active Substance: EPINEPHRINE
     Indication: ANAPHYLACTIC REACTION
     Dosage: UNK, AS NEEDED (INJECT 0.3 MLS INTO THE MUSCLE ONCE AS NEEDED)
     Route: 030
     Dates: start: 2014
  3. CYCLOBENZAPRINE. [Concomitant]
     Active Substance: CYCLOBENZAPRINE
     Indication: ARTHRALGIA
  4. SUMATRIPTAN. [Concomitant]
     Active Substance: SUMATRIPTAN
     Indication: MIGRAINE
     Dosage: 100 MG, AS NEEDED (TAKE 1 TABLET BY MOUTH AT ONSET OF MIGRAINE, MAY REPEAT AFTER 2 HOURS IF NEEDED)
     Route: 048
     Dates: start: 1997
  5. BUDESONIDE/FORMOTEROL [Concomitant]
     Active Substance: BUDESONIDE\FORMOTEROL
     Indication: ASTHMA
     Dosage: 2 DF, AS NEEDED (160MCG/ 4.5MCG, 2 PUFFS INTO THE LUNGS 2 TIMES DAILY (YELLOW ZONE)
     Dates: start: 2019
  6. LEUCOVORIN [FOLINIC ACID] [Concomitant]
     Active Substance: LEUCOVORIN
     Dosage: 5 MG, AS NEEDED (I TAB AS NEEDED THE NEXT DAY OF METHOTREXATE (NO MORE THAN 1 PER WEEK))
     Dates: start: 2007
  7. LEVOTHYROXINE. [Concomitant]
     Active Substance: LEVOTHYROXINE
     Indication: HYPOTHYROIDISM
     Dosage: 50 UG, DAILY
     Route: 048
     Dates: start: 2005
  8. PROMETHAZINE [Concomitant]
     Active Substance: PROMETHAZINE HYDROCHLORIDE
     Indication: NAUSEA
     Dosage: 25 MG, AS NEEDED
     Dates: start: 1997
  9. SULFASALAZINE. [Concomitant]
     Active Substance: SULFASALAZINE
     Indication: MIGRAINE
     Dosage: 1000 MG, 3X/DAY (TAKE 2 TABLET BY MOUTH AT 3 TIMES DAILY)
     Route: 048
     Dates: start: 2007
  10. CARBAMAZEPINE. [Concomitant]
     Active Substance: CARBAMAZEPINE
     Dosage: 100 MG, 3X/DAY
     Dates: start: 2017
  11. CLONAZEPAM. [Concomitant]
     Active Substance: CLONAZEPAM
     Dosage: 0.5 MG, AS NEEDED (2 TIMES DAILY)
     Route: 048
     Dates: start: 2010
  12. LACTASE [Concomitant]
     Active Substance: LACTASE
     Indication: LACTOSE INTOLERANCE
     Dosage: 9000 IU, 3X/DAY TAKE 3 TABLETS BY MOUTH 3 TIMES DAILY (WITH MEALS)
     Route: 048
     Dates: start: 1993
  13. METHOTREXATE. [Concomitant]
     Active Substance: METHOTREXATE
     Indication: SPONDYLOARTHROPATHY
     Dosage: 1 ML, WEEKLY
     Route: 058
     Dates: start: 2007
  14. METOCLOPRAMIDE. [Concomitant]
     Active Substance: METOCLOPRAMIDE
     Indication: IMPAIRED GASTRIC EMPTYING
     Dosage: 10 MG, AS NEEDED  (TAKE 1 TABLET BY MOUTH 3 TIMES DAILY AS NEEDED)
     Route: 048
     Dates: start: 2005
  15. METOCLOPRAMIDE. [Concomitant]
     Active Substance: METOCLOPRAMIDE
     Indication: NAUSEA
  16. LYRICA [Suspect]
     Active Substance: PREGABALIN
     Indication: TRIGEMINAL NEURALGIA
     Dosage: 75 MG, 3X/DAY
     Dates: end: 20190726
  17. LYRICA [Suspect]
     Active Substance: PREGABALIN
     Dosage: 75 MG, 3X/DAY
  18. CELECOXIB. [Concomitant]
     Active Substance: CELECOXIB
     Dosage: 200 MG, 2X/DAY
     Route: 048
     Dates: start: 2012
  19. FOLIC ACID. [Concomitant]
     Active Substance: FOLIC ACID
     Dosage: 3 MG, 1X/DAY
     Route: 048
     Dates: start: 2007
  20. NORETHINDRONE ACETATE AND ETHINYL ESTRADIOL [Concomitant]
     Active Substance: ETHINYL ESTRADIOL\NORETHINDRONE ACETATE
     Dosage: UNK, DAILY (1/35 (28) 1?35 MG?MCG PER TABLET)
     Dates: start: 1990
  21. CETIRIZINE [Concomitant]
     Active Substance: CETIRIZINE HYDROCHLORIDE
     Dosage: 10 MG, 2X/DAY
     Route: 048
     Dates: start: 2018
  22. HYDROCORTISONE. [Concomitant]
     Active Substance: HYDROCORTISONE
     Dosage: 40 MG (30 MG IN AM AND 10 MG AT 1?2 PM)
     Dates: start: 2015
  23. LEVONORGESTREL AND ETHINYL ESTRADIOL [Concomitant]
     Active Substance: ETHINYL ESTRADIOL\LEVONORGESTREL
     Indication: ORAL CONTRACEPTION
     Dosage: 1 DF, DAILY (0.15/ 0.03)
     Route: 048
     Dates: start: 1990
  24. PROAIR HFA [Concomitant]
     Active Substance: ALBUTEROL SULFATE
     Indication: ASTHMA
     Dosage: 2 DF, AS NEEDED (INHALE 2 PUFFS INTO THE LUNGS EVERY 4 HOURS, FOR SHORTNESS OF BREATH OR WHEEZING)
     Dates: start: 1985
  25. DICLOFENAC [Concomitant]
     Active Substance: DICLOFENAC
     Dosage: UNK (APPLY 1?2 GRAMS TO HANDS 3?4 TIMES DAILY. RUB IN WELL FOR 1?2 MINUTES)
     Dates: start: 2017
  26. DULOXETINE. [Concomitant]
     Active Substance: DULOXETINE
     Dosage: 60 MG, 2X/DAY
     Route: 048
     Dates: start: 2016
  27. FOLIC ACID. [Concomitant]
     Active Substance: FOLIC ACID
     Dosage: 1 MG, DAILY (TAKE 1 TABLET BY MOUTH DAILY. MAY TAKE 3 TABLETS ONCE DAILY AFTER WEEKLY METHO INJECT)
     Route: 048
     Dates: start: 2007
  28. TOPIRAMATE. [Concomitant]
     Active Substance: TOPIRAMATE
     Dosage: 100 MG, 3X/DAY (TAKE 100 MG BY MOUTH 3 TIMES DAILY)
     Route: 048
     Dates: start: 2017
  29. CETIRIZINE [Concomitant]
     Active Substance: CETIRIZINE HYDROCHLORIDE
     Dosage: 10 MG, 3X/DAY
     Route: 048
     Dates: start: 2018
  30. LYRICA [Suspect]
     Active Substance: PREGABALIN
     Indication: SPONDYLOARTHROPATHY
     Dosage: 75 MG, 3X/DAY
     Dates: start: 20190803
  31. BUSPIRONE [Concomitant]
     Active Substance: BUSPIRONE HYDROCHLORIDE
     Dosage: 10 MG, 2X/DAY (10 MG 2 TIMES DAILY)
     Dates: start: 2018
  32. CYCLOBENZAPRINE. [Concomitant]
     Active Substance: CYCLOBENZAPRINE
     Indication: MUSCLE SPASMS
     Dosage: 5 MG, AS NEEDED (1 TABLET BY MOUTH 3 TIMES DAILY AS NEEDED )
     Dates: start: 2010
  33. PREDNISONE. [Concomitant]
     Active Substance: PREDNISONE
     Dosage: 5 MG, DAILY (TAKE 1 TABLET BY MOUTH DAILY. ANY FURTHER DOSING PER RHEUMATOLOGY/NEUROLOGY)
     Route: 048
     Dates: start: 2015
  34. VITAMIN D [ERGOCALCIFEROL] [Concomitant]
     Active Substance: ERGOCALCIFEROL
     Dosage: 50000 IU, WEEKLY(TAKE 1 CAPSULE BY MOUTH 1 DAY A WEEK.)
     Route: 048
     Dates: start: 2018

REACTIONS (11)
  - Visual impairment [Recovered/Resolved]
  - Eye infection [Unknown]
  - Bradyphrenia [Recovered/Resolved]
  - Mood altered [Recovering/Resolving]
  - Pain [Recovered/Resolved]
  - Cerebral disorder [Recovered/Resolved]
  - Headache [Recovered/Resolved]
  - Nausea [Recovered/Resolved]
  - Migraine [Recovered/Resolved]
  - Malaise [Recovered/Resolved]
  - Withdrawal syndrome [Recovered/Resolved]

NARRATIVE: CASE EVENT DATE: 20190727
